FAERS Safety Report 8219344-0 (Version None)
Quarter: 2012Q1

REPORT INFORMATION
  Report Type: 
  Country: None (occurrence: None)
  Receive Date: 20120319
  Receipt Date: 20120309
  Transmission Date: 20120608
  Serious: Yes (Hospitalization, Other)
  Sender: FDA-Public Use
  Company Number: US-ASTELLAS-2012US002628

PATIENT
  Age: 64 Year
  Sex: Female

DRUGS (6)
  1. DASATINIB [Suspect]
     Dosage: 50 MG, UNKNOWN/D
     Route: 048
     Dates: start: 20120201
  2. DASATINIB [Suspect]
     Indication: NON-SMALL CELL LUNG CANCER
     Dosage: 50 MG, UNKNOWN/D
     Route: 048
     Dates: start: 20120113, end: 20120201
  3. DASATINIB [Suspect]
     Dosage: 20 MG, UNKNOWN/D
     Route: 048
     Dates: start: 20120113, end: 20120201
  4. DASATINIB [Suspect]
     Dosage: 20 MG, UNKNOWN/D
     Route: 048
     Dates: start: 20120201
  5. ERLOTINIB HYDROCHLORIDE [Suspect]
     Indication: NON-SMALL CELL LUNG CANCER
     Dosage: 150 MG, UNKNOWN/D
     Route: 048
     Dates: start: 20120113, end: 20120201
  6. ERLOTINIB HYDROCHLORIDE [Suspect]
     Dosage: 150 MG, UNKNOWN/D
     Route: 048
     Dates: start: 20120201

REACTIONS (6)
  - VOMITING [None]
  - DIARRHOEA [None]
  - DYSPEPSIA [None]
  - NAUSEA [None]
  - MALLORY-WEISS SYNDROME [None]
  - HAEMATEMESIS [None]
